FAERS Safety Report 21907397 (Version 1)
Quarter: 2023Q1

REPORT INFORMATION
  Report Type: Spontaneous
  Country: US (occurrence: None)
  Receive Date: 20230124
  Receipt Date: 20230124
  Transmission Date: 20230418
  Serious: Yes (Hospitalization)
  Sender: FDA-Public Use
  Company Number: None

PATIENT
  Age: 41 Year
  Sex: Female

DRUGS (1)
  1. NIVESTYM [Suspect]
     Active Substance: FILGRASTIM-AAFI
     Indication: Rectal cancer
     Route: 058
     Dates: start: 20220812

REACTIONS (4)
  - Viral infection [None]
  - Dehydration [None]
  - Therapy interrupted [None]
  - Immunosuppression [None]

NARRATIVE: CASE EVENT DATE: 20221221
